FAERS Safety Report 6328159-X (Version None)
Quarter: 2009Q3

REPORT INFORMATION
  Report Type: 
  Country: None (occurrence: None)
  Receive Date: 20090825
  Receipt Date: 20081210
  Transmission Date: 20100115
  Serious: No
  Sender: FDA-Public Use
  Company Number: US-ABBOTT-08P-163-0488132-00

PATIENT
  Weight: 99.88 kg

DRUGS (3)
  1. SYNTHROID [Suspect]
     Indication: THYROID DISORDER
     Dates: start: 19880101, end: 20080703
  2. SYNTHROID [Suspect]
     Dates: start: 20080703, end: 20081015
  3. SYNTHROID [Suspect]
     Dates: start: 20081015

REACTIONS (3)
  - BLOOD THYROID STIMULATING HORMONE DECREASED [None]
  - FATIGUE [None]
  - MALAISE [None]
